FAERS Safety Report 5371908-8 (Version None)
Quarter: 2007Q2

REPORT INFORMATION
  Report Type: 
  Country: None (occurrence: None)
  Receive Date: 20070619
  Receipt Date: 20070328
  Transmission Date: 20071010
  Serious: No
  Sender: FDA-Public Use
  Company Number: 2007US000911

PATIENT
  Age: 84 Year
  Sex: Male

DRUGS (6)
  1. VESICARE [Suspect]
     Indication: BLADDER DISORDER
     Dosage: 5 MG, ORAL
     Route: 048
     Dates: start: 20070324
  2. HYDROCHLOROTHIAZIDE [Concomitant]
  3. POTASSIUM (POTASSIUM CHLORIDE) [Concomitant]
  4. FOLIC ACID [Concomitant]
  5. THEOPHYLLINE [Concomitant]
  6. GLUCOSAMINE (COD-LIVER OIL, GLUCOSAMINE, VITAMINS NOS, MINERALS NOS, S [Concomitant]

REACTIONS (1)
  - DRUG INEFFECTIVE [None]
